FAERS Safety Report 22331667 (Version 1)
Quarter: 2023Q2

REPORT INFORMATION
  Report Type: Spontaneous
  Country: FR (occurrence: FR)
  Receive Date: 20230517
  Receipt Date: 20230517
  Transmission Date: 20230722
  Serious: Yes (Other)
  Sender: FDA-Public Use
  Company Number: None

PATIENT
  Age: 67 Year
  Sex: Female
  Weight: 55 kg

DRUGS (3)
  1. CARBOPLATIN [Suspect]
     Active Substance: CARBOPLATIN
     Indication: Triple negative breast cancer
     Dosage: PROTOCOL PEMBROLIZUMAB D1D21 + CARBOPLATIN AUC 1.5 + PACLITAXEL 80 D1D8D15, SPECIALTIES USED
     Dates: start: 202211, end: 20230214
  2. PACLITAXEL [Suspect]
     Active Substance: PACLITAXEL
     Indication: Triple negative breast cancer
     Dosage: STRENGTH: 6 MG/ML, PROTOCOL PEMBROLIZUMAB D1D21 + CARBOPLATIN AUC 1.
     Dates: start: 202211, end: 20230214
  3. PEMBROLIZUMAB [Concomitant]
     Active Substance: PEMBROLIZUMAB
     Indication: Triple negative breast cancer
     Dosage: 200
     Dates: start: 20221108, end: 20221220

REACTIONS (1)
  - Hepatocellular injury [Recovered/Resolved]

NARRATIVE: CASE EVENT DATE: 20230103
